FAERS Safety Report 7400280-4 (Version None)
Quarter: 2011Q2

REPORT INFORMATION
  Report Type: 
  Country: None (occurrence: None)
  Receive Date: 20110407
  Receipt Date: 20110329
  Transmission Date: 20111010
  Serious: Yes (Hospitalization)
  Sender: FDA-Public Use
  Company Number: US-ASTRAZENECA-2011SE18220

PATIENT
  Age: 523 Month
  Sex: Male
  Weight: 66.2 kg

DRUGS (34)
  1. PREDNISONE [Concomitant]
     Route: 048
     Dates: start: 20100106
  2. VORICONAZOLE [Concomitant]
     Route: 048
  3. CALCIUM CARBONATE [Concomitant]
     Route: 048
  4. LINEZOLID [Concomitant]
     Route: 042
     Dates: start: 20100104
  5. NORVASC [Concomitant]
     Indication: HYPERTENSION
     Route: 048
  6. PREDNISONE [Concomitant]
     Route: 048
     Dates: start: 20100106
  7. COLACE [Concomitant]
     Dosage: 100-200 MG TWICE A DAY
     Route: 048
  8. OXYCODONE HCL [Concomitant]
     Route: 048
  9. BACTRIM DS [Concomitant]
     Indication: PNEUMOCYSTIS JIROVECI PNEUMONIA
     Dosage: ONE TABLET SATURDAY, SUNDAY, MONDAY
  10. ZOSYN [Concomitant]
     Route: 042
     Dates: end: 20110314
  11. PRILOSEC [Suspect]
     Indication: GASTROOESOPHAGEAL REFLUX DISEASE
     Route: 048
  12. VORICONAZOLE [Concomitant]
     Route: 048
  13. FK 506 [Concomitant]
     Route: 048
  14. CLOBETASOL PROPIONATE [Concomitant]
     Dosage: 0.05 TO AFFECTED AREAS TWICE A DAY
  15. COLACE [Concomitant]
     Route: 048
  16. COLACE [Concomitant]
     Dosage: PRN CONSTIPATION
     Route: 048
  17. LISINOPRIL [Concomitant]
     Route: 048
  18. PRILOSEC [Suspect]
     Route: 048
     Dates: start: 20110201
  19. AZITHROMYCIN [Concomitant]
     Indication: LUNG DISORDER
     Route: 048
  20. FLOVENT [Concomitant]
     Route: 055
  21. FLOVENT [Concomitant]
     Dosage: 110 MCG TWO INHALATIONS TWICE A DAY
     Route: 055
  22. SINGULAIR [Concomitant]
     Route: 048
  23. VALTREX [Concomitant]
     Route: 048
  24. SENNA [Concomitant]
  25. MORPHINE SULFATE [Concomitant]
     Route: 048
  26. MS CONTIN [Concomitant]
  27. FK 506 [Concomitant]
     Route: 048
  28. SENNA [Concomitant]
     Dosage: PRN CONSTIPATION
  29. OXYCODONE HCL [Concomitant]
     Route: 048
  30. OXYCODONE HCL [Concomitant]
     Dosage: PRN BREAKTHROUGHT PAIN
     Route: 048
  31. CELLCEPT [Concomitant]
     Route: 048
  32. LOPRESSOR [Concomitant]
     Indication: HYPERTENSION
     Route: 048
  33. POTASSIUM PHOSPHATES [Concomitant]
     Route: 048
  34. SEPTRA DS [Concomitant]
     Dosage: EVERY SATURDAY, SUNDAY, MONDAY

REACTIONS (7)
  - PNEUMONIA FUNGAL [None]
  - CHRONIC GRAFT VERSUS HOST DISEASE [None]
  - PSEUDOMONAS INFECTION [None]
  - CYTOMEGALOVIRUS VIRAEMIA [None]
  - GASTROINTESTINAL HAEMORRHAGE [None]
  - STAPHYLOCOCCAL INFECTION [None]
  - ENTEROCOCCAL INFECTION [None]
